FAERS Safety Report 14693187 (Version 1)
Quarter: 2018Q1

REPORT INFORMATION
  Report Type: Spontaneous
  Country: AR (occurrence: AR)
  Receive Date: 20180329
  Receipt Date: 20180329
  Transmission Date: 20180509
  Serious: Yes (Other)
  Sender: FDA-Public Use
  Company Number: AR-BAYER-2018-056265

PATIENT
  Age: 33 Year
  Sex: Male

DRUGS (1)
  1. BETAFERON [Suspect]
     Active Substance: INTERFERON BETA-1B
     Dosage: UNK
     Dates: start: 2008, end: 2012

REACTIONS (11)
  - Central nervous system lesion [None]
  - Cerebral disorder [None]
  - Nervous system disorder [None]
  - Central nervous system lesion [Recovered/Resolved]
  - Pain [Recovered/Resolved]
  - Pain in extremity [Recovered/Resolved]
  - Leukoencephalopathy [None]
  - Optic neuropathy [None]
  - Eye pain [None]
  - Optic neuritis [None]
  - Visual acuity reduced [None]

NARRATIVE: CASE EVENT DATE: 20090703
